FAERS Safety Report 9850316 (Version 1)
Quarter: 2014Q1

REPORT INFORMATION
  Report Type: Spontaneous
  Country: US (occurrence: US)
  Receive Date: 20140128
  Receipt Date: 20140128
  Transmission Date: 20141002
  Serious: Yes (Other)
  Sender: FDA-Public Use
  Company Number: PHHY2014US007853

PATIENT
  Age: 49 Year
  Sex: Female

DRUGS (2)
  1. CLONAZEPAM [Suspect]
     Dosage: 100 MG, UNK
  2. AMITRIPTYLINE [Suspect]
     Dosage: 700 MG, UNK

REACTIONS (5)
  - Electrocardiogram QT prolonged [Unknown]
  - Mental status changes [Recovering/Resolving]
  - Depressed level of consciousness [Recovered/Resolved]
  - Overdose [Unknown]
  - Blood pressure increased [Unknown]
